FAERS Safety Report 8263127-2 (Version None)
Quarter: 2012Q2

REPORT INFORMATION
  Report Type: 
  Country: None (occurrence: None)
  Receive Date: 20120405
  Receipt Date: 20120323
  Transmission Date: 20120825
  Serious: Yes (Other)
  Sender: FDA-Public Use
  Company Number: DE-ELI_LILLY_AND_COMPANY-DE201203008183

PATIENT
  Age: 13 Year
  Sex: Male

DRUGS (2)
  1. RISPERDAL [Concomitant]
     Dosage: 0.5 MG, UNK
     Dates: start: 20100101
  2. STRATTERA [Suspect]
     Indication: ATTENTION DEFICIT/HYPERACTIVITY DISORDER
     Dosage: 35 MG, UNK
     Route: 048
     Dates: start: 20111212, end: 20120320

REACTIONS (3)
  - ANGINA PECTORIS [None]
  - TACHYCARDIA [None]
  - SINUS ARRHYTHMIA [None]
